FAERS Safety Report 19583319 (Version 1)
Quarter: 2021Q3

REPORT INFORMATION
  Report Type: Spontaneous
  Country: GB (occurrence: GB)
  Receive Date: 20210720
  Receipt Date: 20210720
  Transmission Date: 20211014
  Serious: Yes (Hospitalization, Other)
  Sender: FDA-Public Use
  Company Number: GB-AXELLIA-003848

PATIENT
  Age: 66 Year
  Sex: Female

DRUGS (2)
  1. TIGECYCLINE. [Suspect]
     Active Substance: TIGECYCLINE
     Indication: ACINETOBACTER INFECTION
     Dosage: 100MG AND THEN 50MG 12 HOURLY
  2. COLISTIN [Suspect]
     Active Substance: COLISTIN
     Indication: ACINETOBACTER INFECTION
     Dosage: 9MU LOADING DOSE FOLLOWED BY 3MU 8 HOURLY
     Route: 042

REACTIONS (4)
  - Vomiting [Recovered/Resolved]
  - Dehydration [Recovered/Resolved]
  - Abdominal discomfort [Recovered/Resolved]
  - Acute kidney injury [Recovered/Resolved]
